FAERS Safety Report 6713079-9 (Version None)
Quarter: 2010Q2

REPORT INFORMATION
  Report Type: 
  Country: None (occurrence: None)
  Receive Date: 20100506
  Receipt Date: 20100426
  Transmission Date: 20101027
  Serious: Yes (Hospitalization)
  Sender: FDA-Public Use
  Company Number: US-AMGEN-KDL408623

PATIENT
  Sex: Female

DRUGS (1)
  1. ENBREL [Suspect]
     Indication: RHEUMATOID ARTHRITIS
     Route: 058
     Dates: start: 20070116

REACTIONS (20)
  - AMNESIA [None]
  - ANAEMIA [None]
  - BLOOD PRESSURE INCREASED [None]
  - ERYTHEMA [None]
  - EXOSTOSIS [None]
  - FACE INJURY [None]
  - FALL [None]
  - FOOT DEFORMITY [None]
  - HEART RATE INCREASED [None]
  - IMPAIRED HEALING [None]
  - INJECTION SITE HAEMORRHAGE [None]
  - MASS [None]
  - MUSCLE SPASMS [None]
  - MUSCULOSKELETAL PAIN [None]
  - NECK PAIN [None]
  - OEDEMA PERIPHERAL [None]
  - OSTEOARTHRITIS [None]
  - RHEUMATOID ARTHRITIS [None]
  - SPINAL COLUMN STENOSIS [None]
  - STRESS [None]
